FAERS Safety Report 7644544-8 (Version None)
Quarter: 2011Q3

REPORT INFORMATION
  Report Type: 
  Country: None (occurrence: None)
  Receive Date: 20110729
  Receipt Date: 20110719
  Transmission Date: 20111222
  Serious: Yes (Hospitalization)
  Sender: FDA-Public Use
  Company Number: DE-ELI_LILLY_AND_COMPANY-DE201107004791

PATIENT
  Sex: Female
  Weight: 60 kg

DRUGS (4)
  1. GEMCITABINE HYDROCHLORIDE [Suspect]
     Indication: BREAST CANCER
     Dosage: 1710 MG, UNK
     Route: 042
     Dates: start: 20110609, end: 20110609
  2. DOCETAXEL [Suspect]
     Indication: BREAST CANCER
     Dosage: 128.02 MG, UNK
     Route: 042
     Dates: start: 20110609
  3. LITHIUM CARBONATE [Concomitant]
     Indication: DEPRESSION
     Dosage: 300 MG, UNK
     Route: 048
  4. GEMCITABINE HYDROCHLORIDE [Suspect]
     Dosage: 1706.9 MG, UNK
     Route: 042
     Dates: start: 20110615

REACTIONS (3)
  - PANCYTOPENIA [None]
  - GENERAL PHYSICAL HEALTH DETERIORATION [None]
  - DEPRESSION [None]
